FAERS Safety Report 9000996 (Version 1)
Quarter: 2012Q4

REPORT INFORMATION
  Report Type: Spontaneous
  Country: DE (occurrence: None)
  Receive Date: 20121226
  Receipt Date: 20121226
  Transmission Date: 20130627
  Serious: Yes (Hospitalization)
  Sender: FDA-Public Use
  Company Number: AG-2012-2014

PATIENT
  Age: 79 Year
  Sex: Female
  Weight: 85.2 kg

DRUGS (18)
  1. CHLORAMBUCIL [Suspect]
     Indication: B-CELL LYMPHOMA
     Dosage: (15 Milligram, Day 1-5/ Every 4 weeks), Oral
     Route: 048
     Dates: start: 20100706, end: 20100803
  2. CHLORAMBUCIL [Suspect]
     Indication: B-CELL LYMPHOMA
     Dosage: (15 Milligram, Day 1- 5 eery 4 weeks), Oral
     Route: 048
     Dates: start: 20100818, end: 20101125
  3. RITUXIMAB [Suspect]
     Dosage: (675 Milligram
     Route: 042
     Dates: start: 20100705, end: 20100802
  4. MITOXANTRONE [Suspect]
     Indication: B-CELL LYMPHOMA
     Dosage: 14 Milligram (14 Milligram, D1-D2 every 4 weeks), Intravenous (not otherwise specified)
     Route: 042
     Dates: start: 20100706, end: 20100803
  5. MITOXANTRONE [Suspect]
     Indication: B-CELL LYMPHOMA
     Dosage: 14 Milligram (15 Milligram, D1-D2 every 4 weeks), Intravenous (not otherwise specified)
     Route: 042
     Dates: start: 20100818, end: 20101125
  6. PREDNISOLONE [Suspect]
     Indication: B-CELL LYMPHOMA
     Dosage: 45 Milligram (45 Milligram, Day 1- 5/Every 4 weeks), Oral
     Route: 048
     Dates: start: 20100706, end: 20100803
  7. PREDNISOLONE [Suspect]
     Indication: B-CELL LYMPHOMA
     Dosage: 45 Milligram (45 Milligram, Day 1- 5/ Every 4 weeks), Oral
     Route: 048
     Dates: start: 20100818, end: 20101125
  8. EUTHYROX (LEVOTHYROXINE SODIUM) [Concomitant]
  9. RAMIPRIL (RAMIPRIL) [Concomitant]
  10. VERAPAMIL (VERAPAMIL) [Concomitant]
  11. LEVODOPA (LEVODOPA) [Concomitant]
  12. FORMOTEROL (FORMOTEROL) [Concomitant]
  13. IPRTROPIUMBROMID [Concomitant]
  14. TIOTROPIUM BROMIDE (TIOTROPIUM BROMIDE) [Concomitant]
  15. PANTOPRAZOLE (PANTOPRAZOLE) [Concomitant]
  16. DURAGESIC (FENTANYL) [Concomitant]
  17. LYRICA (PREGABALIN) [Concomitant]
  18. IDEOS (CALCIUM CARBONATE) [Concomitant]

REACTIONS (12)
  - General physical health deterioration [None]
  - Dyspnoea [None]
  - Abdominal pain [None]
  - Nausea [None]
  - Vomiting [None]
  - Restlessness [None]
  - Vomiting [None]
  - Diarrhoea [None]
  - Dehydration [None]
  - Fatigue [None]
  - Renal failure [None]
  - Bronchial obstruction [None]
